FAERS Safety Report 11324537 (Version 1)
Quarter: 2015Q3

REPORT INFORMATION
  Report Type: Report from Study
  Country: BR (occurrence: BR)
  Receive Date: 20150730
  Receipt Date: 20150730
  Transmission Date: 20151125
  Serious: Yes (Hospitalization, Other)
  Sender: FDA-Public Use
  Company Number: BR-GLAXOSMITHKLINE INC.-BR2015GSK076672

PATIENT
  Sex: Male
  Weight: 84 kg

DRUGS (2)
  1. FLUTICASONE PROPIONATE+SALMETEROL XINAFOATE [Suspect]
     Active Substance: FLUTICASONE PROPIONATE\SALMETEROL XINAFOATE
     Indication: BRONCHITIS
     Dosage: 50/250 MCG
     Route: 055
  2. GALVUS (VILDAGLIPTIN) [Concomitant]
     Indication: DIABETES MELLITUS
     Dosage: UNK
     Route: 048

REACTIONS (5)
  - Procedural complication [Unknown]
  - Nosocomial infection [Unknown]
  - Influenza [Unknown]
  - Myocardial infarction [Recovered/Resolved]
  - Hypoglycaemia [Unknown]
